FAERS Safety Report 19208943 (Version 3)
Quarter: 2021Q3

REPORT INFORMATION
  Report Type: Report from Study
  Country: GB (occurrence: GB)
  Receive Date: 20210503
  Receipt Date: 20210928
  Transmission Date: 20211014
  Serious: Yes (Other)
  Sender: FDA-Public Use
  Company Number: GB-BIOGEN-2018BI00550462

PATIENT
  Age: 31 Year
  Sex: Female

DRUGS (4)
  1. TYSABRI [Suspect]
     Active Substance: NATALIZUMAB
     Indication: RELAPSING-REMITTING MULTIPLE SCLEROSIS
     Dosage: INFUSED OVER ONE HOUR
     Route: 050
     Dates: start: 20171013
  2. TYSABRI [Suspect]
     Active Substance: NATALIZUMAB
     Route: 050
  3. TYSABRI [Suspect]
     Active Substance: NATALIZUMAB
     Dosage: INFUSED OVER ONE HOUR
     Route: 050
  4. TYSABRI [Suspect]
     Active Substance: NATALIZUMAB
     Route: 065

REACTIONS (18)
  - Bronchitis [Recovered/Resolved]
  - Nausea [Not Recovered/Not Resolved]
  - Oropharyngeal pain [Not Recovered/Not Resolved]
  - Dysphagia [Not Recovered/Not Resolved]
  - Labyrinthitis [Recovered/Resolved]
  - Gastrooesophageal reflux disease [Recovered/Resolved]
  - Thyroid function test abnormal [Recovered/Resolved]
  - Paraesthesia [Unknown]
  - Herpes ophthalmic [Not Recovered/Not Resolved]
  - Pharyngitis [Recovered/Resolved]
  - Dysphonia [Not Recovered/Not Resolved]
  - Paraesthesia [Not Recovered/Not Resolved]
  - Tonsillitis [Recovered/Resolved]
  - Eczema eyelids [Not Recovered/Not Resolved]
  - Gastric disorder [Recovered/Resolved]
  - Anaemia [Not Recovered/Not Resolved]
  - Vomiting [Recovered/Resolved]
  - Urinary tract infection [Recovered/Resolved]

NARRATIVE: CASE EVENT DATE: 20190128
